FAERS Safety Report 19601733 (Version 2)
Quarter: 2021Q3

REPORT INFORMATION
  Report Type: Spontaneous
  Country: CA (occurrence: CA)
  Receive Date: 20210723
  Receipt Date: 20210906
  Transmission Date: 20211014
  Serious: Yes (Other)
  Sender: FDA-Public Use
  Company Number: CA-CELLTRION INC.-2021CA009843

PATIENT

DRUGS (7)
  1. HYDROCHLOROTHIAZIDE. [Concomitant]
     Active Substance: HYDROCHLOROTHIAZIDE
     Dosage: 1 DF DOSAGE INFORMATION NOT AVAILABLE
  2. PREDNISONE. [Concomitant]
     Active Substance: PREDNISONE
     Dosage: 1 DF DOSAGE INFORMATION NOT AVAILABLE
  3. MESALAMINE. [Concomitant]
     Active Substance: MESALAMINE
     Dosage: 1 DF, DAILY (3.6 G DAILY)
  4. INFLECTRA [Suspect]
     Active Substance: INFLIXIMAB-DYYB
     Indication: COLITIS ULCERATIVE
     Dosage: 300 MG 0, 2, 6 WEEKS, THEN EVERY 8 WEEKS
     Route: 041
     Dates: start: 20191119
  5. ROSUVASTATIN. [Concomitant]
     Active Substance: ROSUVASTATIN
     Dosage: 1 DF DOSAGE INFORMATION NOT AVAILABLE
  6. INFLECTRA [Suspect]
     Active Substance: INFLIXIMAB-DYYB
     Dosage: 300 MG 0, 2, 6 WEEKS, THEN EVERY 8 WEEKS
     Route: 041
     Dates: start: 20210527
  7. MESALAMINE. [Concomitant]
     Active Substance: MESALAMINE
     Dosage: 3.6 G, DAILY

REACTIONS (14)
  - Poor peripheral circulation [Unknown]
  - Visual impairment [Unknown]
  - Memory impairment [Unknown]
  - Frustration tolerance decreased [Unknown]
  - Asthenopia [Not Recovered/Not Resolved]
  - Glaucoma [Unknown]
  - Somnolence [Unknown]
  - Headache [Unknown]
  - Dry eye [Not Recovered/Not Resolved]
  - Poor venous access [Unknown]
  - Head discomfort [Not Recovered/Not Resolved]
  - Weight decreased [Unknown]
  - Fatigue [Not Recovered/Not Resolved]
  - Asthenia [Unknown]

NARRATIVE: CASE EVENT DATE: 2020
